FAERS Safety Report 7883110-6 (Version None)
Quarter: 2011Q4

REPORT INFORMATION
  Report Type: 
  Country: None (occurrence: None)
  Receive Date: 20111102
  Receipt Date: 20111026
  Transmission Date: 20120403
  Serious: No
  Sender: FDA-Public Use
  Company Number: US-BIOGENIDEC-2011BI041134

PATIENT
  Age: 35 Year
  Sex: Female

DRUGS (2)
  1. AVONEX [Concomitant]
     Indication: MULTIPLE SCLEROSIS
     Route: 030
  2. TYSABRI [Suspect]
     Indication: MULTIPLE SCLEROSIS
     Route: 042
     Dates: start: 20100819

REACTIONS (5)
  - VITAMIN B12 DECREASED [None]
  - BLOOD FOLATE DECREASED [None]
  - ABDOMINAL PAIN [None]
  - ANAEMIA [None]
  - PLATELET COUNT DECREASED [None]
